FAERS Safety Report 5340485-X (Version None)
Quarter: 2007Q2

REPORT INFORMATION
  Report Type: 
  Country: None (occurrence: None)
  Receive Date: 20070531
  Receipt Date: 20070521
  Transmission Date: 20071010
  Serious: Yes (Other)
  Sender: FDA-Public Use
  Company Number: FR-PFIZER INC-2007040915

PATIENT
  Sex: Female

DRUGS (7)
  1. LYRICA [Suspect]
     Indication: SCIATICA
     Dates: start: 20070514, end: 20070515
  2. LYRICA [Suspect]
     Indication: INTERVERTEBRAL DISC PROTRUSION
  3. TRAMADOL HYDROCHLORIDE AND ACETAMINOPHEN [Suspect]
     Indication: SCIATICA
     Dates: start: 20070514, end: 20070515
  4. TRAMADOL HYDROCHLORIDE AND ACETAMINOPHEN [Suspect]
     Indication: INTERVERTEBRAL DISC PROTRUSION
  5. LEVOTHYROXINE SODIUM [Concomitant]
  6. IRBESARTAN [Concomitant]
  7. GINKGO BILOBA EXTRACT [Concomitant]

REACTIONS (3)
  - FALL [None]
  - MALAISE [None]
  - SYNCOPE [None]
